FAERS Safety Report 17282222 (Version 1)
Quarter: 2020Q1

REPORT INFORMATION
  Report Type: Spontaneous
  Country: US (occurrence: US)
  Receive Date: 20200117
  Receipt Date: 20200117
  Transmission Date: 20200409
  Serious: No
  Sender: FDA-Public Use
  Company Number: US-PHARMING-PHAUS2020000005

PATIENT

DRUGS (3)
  1. RUCONEST [Suspect]
     Active Substance: HUMAN C1-ESTERASE INHIBITOR
     Indication: ANGIOEDEMA
     Dosage: 4200 IU INTERNATIONAL UNIT(S), AS NEEDED
     Route: 042
     Dates: start: 20190812
  2. EPINEPHRINE. [Concomitant]
     Active Substance: EPINEPHRINE
     Indication: PRODUCT USED FOR UNKNOWN INDICATION
  3. HAEGARDA [Concomitant]
     Active Substance: HUMAN C1-ESTERASE INHIBITOR
     Indication: PRODUCT USED FOR UNKNOWN INDICATION

REACTIONS (3)
  - Accident at work [Recovering/Resolving]
  - Product use in unapproved indication [Unknown]
  - Hereditary angioedema [Unknown]

NARRATIVE: CASE EVENT DATE: 20190812
